FAERS Safety Report 8408554-5 (Version None)
Quarter: 2012Q2

REPORT INFORMATION
  Report Type: 
  Country: None (occurrence: None)
  Receive Date: 20120604
  Receipt Date: 20120525
  Transmission Date: 20120825
  Serious: Yes (Hospitalization, Other)
  Sender: FDA-Public Use
  Company Number: DE-ABBOTT-12P-062-0939052-00

PATIENT
  Sex: Male
  Weight: 81 kg

DRUGS (1)
  1. HUMIRA [Suspect]
     Indication: CROHN'S DISEASE
     Route: 058
     Dates: start: 20100726

REACTIONS (6)
  - ARTHRITIS [None]
  - ARTHRALGIA [None]
  - SYNOVIAL DISORDER [None]
  - JOINT SWELLING [None]
  - CROHN'S DISEASE [None]
  - DIARRHOEA [None]
